FAERS Safety Report 17190148 (Version 1)
Quarter: 2019Q4

REPORT INFORMATION
  Report Type: Spontaneous
  Country: US (occurrence: US)
  Receive Date: 20191223
  Receipt Date: 20191223
  Transmission Date: 20200122
  Serious: Yes (Other)
  Sender: FDA-Public Use
  Company Number: US-SA-2016SA188433

PATIENT
  Age: 66 Year
  Sex: Male

DRUGS (5)
  1. METFORMIN [Concomitant]
     Active Substance: METFORMIN HYDROCHLORIDE
     Dosage: 500 MG
  2. GLIPIZIDE. [Suspect]
     Active Substance: GLIPIZIDE
     Dosage: UNK
  3. NOVOLOG [Concomitant]
     Active Substance: INSULIN ASPART
     Dosage: 5 UNITS TO 9 UNITS
  4. LANTUS SOLOSTAR [Suspect]
     Active Substance: INSULIN GLARGINE
     Indication: TYPE 2 DIABETES MELLITUS
     Dosage: 35 DF,QD
     Route: 065
     Dates: start: 201609
  5. LANTUS SOLOSTAR [Suspect]
     Active Substance: INSULIN GLARGINE
     Dosage: 54 UNITS IN THE MORNING, QD

REACTIONS (10)
  - Memory impairment [Unknown]
  - Product storage error [Unknown]
  - Abdominal pain upper [Unknown]
  - Cerebrovascular accident [Unknown]
  - Injection site pain [Unknown]
  - Intentional product misuse [Unknown]
  - Product administration error [Unknown]
  - Balance disorder [Unknown]
  - Blood glucose decreased [Unknown]
  - Blood glucose increased [Unknown]
